FAERS Safety Report 4462762-7 (Version None)
Quarter: 2004Q3

REPORT INFORMATION
  Report Type: 
  Country: None (occurrence: None)
  Receive Date: 20040927
  Receipt Date: 20040910
  Transmission Date: 20050211
  Serious: Yes (Other)
  Sender: FDA-Public Use
  Company Number: 8006832

PATIENT
  Age: 45 Year
  Sex: Female

DRUGS (16)
  1. KEPPRA [Suspect]
     Indication: MUSCLE SPASTICITY
     Dosage: 250 MG PO
     Route: 048
     Dates: start: 20031110, end: 20031112
  2. KEPPRA [Suspect]
     Indication: MUSCLE SPASTICITY
     Dosage: 500 MG /D PO
     Route: 048
     Dates: start: 20031113, end: 20031123
  3. KEPPRA [Suspect]
     Indication: MUSCLE SPASTICITY
     Dosage: 750 MG PO
     Route: 048
     Dates: start: 20031124, end: 20040503
  4. BACLOFEN [Concomitant]
  5. SKELAXIN [Concomitant]
  6. PROVIGIL [Concomitant]
  7. ZOLOFT [Concomitant]
  8. CLONOPIN [Concomitant]
  9. URECHOLINE [Concomitant]
  10. AVONEX [Concomitant]
  11. NAPRELAN [Concomitant]
  12. CLARITIN-D [Concomitant]
  13. B12 [Concomitant]
  14. CALCIUM [Concomitant]
  15. VITAMIN D [Concomitant]
  16. DHEA [Concomitant]

REACTIONS (4)
  - BONE MARROW DEPRESSION [None]
  - FATIGUE [None]
  - HAEMOGLOBIN DECREASED [None]
  - WHITE BLOOD CELL COUNT DECREASED [None]
